FAERS Safety Report 4958855-8 (Version None)
Quarter: 2006Q1

REPORT INFORMATION
  Report Type: 
  Country: None (occurrence: None)
  Receive Date: 20060324
  Receipt Date: 20060315
  Transmission Date: 20060701
  Serious: Yes (Life-Threatening)
  Sender: FDA-Public Use
  Company Number: 200611019GDS

PATIENT
  Age: 82 Year
  Sex: Female

DRUGS (1)
  1. ASPIRIN [Suspect]
     Indication: CORONARY ARTERY DISEASE
     Dosage: 100 MG, QD, ORAL
     Route: 048
     Dates: start: 20040702, end: 20040813

REACTIONS (1)
  - ASTHMATIC CRISIS [None]
